FAERS Safety Report 14754235 (Version 1)
Quarter: 2018Q2

REPORT INFORMATION
  Report Type: Spontaneous
  Country: US (occurrence: US)
  Receive Date: 20180412
  Receipt Date: 20180412
  Transmission Date: 20180711
  Serious: No
  Sender: FDA-Public Use
  Company Number: US-TEIKOKU PHARMA USA-TPU2018-00212

PATIENT
  Sex: Female
  Weight: 72.64 kg

DRUGS (5)
  1. HYDROCODONE BITARTRATE AND ACETAMINOPHEN [Concomitant]
     Active Substance: ACETAMINOPHEN\HYDROCODONE BITARTRATE
     Indication: MUSCULOSKELETAL PAIN
  2. LIDOCAINE PATCH [Suspect]
     Active Substance: LIDOCAINE
     Indication: SCIATICA
  3. XANAX [Concomitant]
     Active Substance: ALPRAZOLAM
     Indication: ANXIETY
     Dosage: 1 TO 1 1/2 TABLETS A DAY
     Dates: start: 201801
  4. LIDOCAINE PATCH [Suspect]
     Active Substance: LIDOCAINE
     Indication: HERNIA
     Dosage: 1 PATCH TO THE LEFT BUTTOCK, SOMETIMES 1/2 PATCH
     Route: 061
  5. HYDROCODONE BITARTRATE AND ACETAMINOPHEN [Concomitant]
     Active Substance: ACETAMINOPHEN\HYDROCODONE BITARTRATE
     Indication: SCIATICA
     Dosage: 7.5/325MG?NDC 65162-0115-50 MAN: AMNEAL PHARMACEUTICALS

REACTIONS (2)
  - Wrong technique in product usage process [Unknown]
  - Rash [Not Recovered/Not Resolved]
